FAERS Safety Report 15597284 (Version 4)
Quarter: 2019Q1

REPORT INFORMATION
  Report Type: Spontaneous
  Country: AU (occurrence: AU)
  Receive Date: 20181108
  Receipt Date: 20190131
  Transmission Date: 20190417
  Serious: Yes (Other)
  Sender: FDA-Public Use
  Company Number: PHHY2018AU148859

PATIENT
  Sex: Female

DRUGS (1)
  1. SYSTANE (HYPROMELLOSE 2910 (4000 MPA.S)) [Suspect]
     Active Substance: HYPROMELLOSE 2910 (4000 MPA.S)
     Indication: PRODUCT USED FOR UNKNOWN INDICATION
     Route: 047

REACTIONS (7)
  - Pneumonia [Unknown]
  - Pruritus [Unknown]
  - Dry eye [Unknown]
  - Incorrect dose administered [Unknown]
  - Product administration error [Unknown]
  - Product quality issue [Unknown]
  - Erythema [Recovering/Resolving]
